FAERS Safety Report 12551458 (Version 2)
Quarter: 2016Q3

REPORT INFORMATION
  Report Type: Spontaneous
  Country: IN (occurrence: IN)
  Receive Date: 20160713
  Receipt Date: 20160713
  Transmission Date: 20161109
  Serious: Yes (Other)
  Sender: FDA-Public Use
  Company Number: IN-CIPLA LTD.-2014IN00543

PATIENT

DRUGS (6)
  1. ITRACONAZOLE. [Suspect]
     Active Substance: ITRACONAZOLE
     Indication: FUNGAL SKIN INFECTION
     Dosage: 200 MG, BID
     Route: 065
  2. AMPHOTERICIN-B [Suspect]
     Active Substance: AMPHOTERICIN B
     Dosage: 10 MG, TWO INJECTIONS ONCE EVERY FORTNIGHT
     Route: 065
  3. POTASSIUM IODIDE. [Suspect]
     Active Substance: POTASSIUM IODIDE
     Indication: FUNGAL SKIN INFECTION
     Dosage: UNK
     Route: 065
  4. AMPHOTERICIN-B [Suspect]
     Active Substance: AMPHOTERICIN B
     Dosage: 10 ML, PER WEEK
     Route: 065
  5. TERBINAFINE. [Suspect]
     Active Substance: TERBINAFINE
     Indication: FUNGAL SKIN INFECTION
     Dosage: 250 MG/DAY
     Route: 065
  6. AMPHOTERICIN-B [Suspect]
     Active Substance: AMPHOTERICIN B
     Indication: FUNGAL SKIN INFECTION
     Dosage: 25 MG/25 ML AT A MAXIMUM IV DOSAGE OF 0.5-1.0 MG/KG/DAY ONCE PER WEEK UNDER ASEPTIC CONDITIONS
     Route: 042

REACTIONS (4)
  - Postoperative wound infection [Recovered/Resolved]
  - Influenza like illness [Unknown]
  - Drug ineffective [Unknown]
  - Renal impairment [Unknown]
